FAERS Safety Report 6910838-4 (Version None)
Quarter: 2010Q3

REPORT INFORMATION
  Report Type: 
  Country: None (occurrence: None)
  Receive Date: 20100806
  Receipt Date: 20100803
  Transmission Date: 20110219
  Serious: Yes (Other)
  Sender: FDA-Public Use
  Company Number: DE-GENZYME-FABR-1001498

PATIENT
  Sex: Male
  Weight: 97 kg

DRUGS (3)
  1. FABRAZYME [Suspect]
     Indication: FABRY'S DISEASE
     Dosage: 1 MG/KG, Q2W
     Route: 042
     Dates: start: 20100601
  2. FABRAZYME [Suspect]
     Dosage: 75 MG, Q2W
     Dates: start: 20061006, end: 20091001
  3. FABRAZYME [Suspect]
     Dosage: UNK
     Dates: start: 20091001, end: 20100601

REACTIONS (1)
  - RENAL FAILURE CHRONIC [None]
